FAERS Safety Report 9366812 (Version 1)
Quarter: 2013Q2

REPORT INFORMATION
  Report Type: Spontaneous
  Country: FR (occurrence: FR)
  Receive Date: 20130625
  Receipt Date: 20130625
  Transmission Date: 20140414
  Serious: Yes (Hospitalization, Other)
  Sender: FDA-Public Use
  Company Number: FR-TEVA-415072ISR

PATIENT
  Age: 98 Year
  Sex: Female

DRUGS (1)
  1. FUROSEMIDE TEVA 40 MG [Suspect]
     Route: 048
     Dates: start: 2013

REACTIONS (6)
  - Pulmonary oedema [Unknown]
  - Nausea [Unknown]
  - Somnolence [Unknown]
  - Fall [Unknown]
  - Anterograde amnesia [Unknown]
  - Oedema peripheral [Unknown]
